FAERS Safety Report 4408817-4 (Version None)
Quarter: 2004Q3

REPORT INFORMATION
  Report Type: 
  Country: None (occurrence: None)
  Receive Date: 20040727
  Receipt Date: 20040611
  Transmission Date: 20050211
  Serious: Yes (Hospitalization)
  Sender: FDA-Public Use
  Company Number: JP-ROCHE-371181

PATIENT
  Age: 57 Year
  Sex: Female

DRUGS (10)
  1. PEGASYS [Suspect]
     Indication: HEPATITIS C
     Route: 058
     Dates: start: 20040528, end: 20040528
  2. PEGASYS [Suspect]
     Route: 058
     Dates: start: 20040604, end: 20040604
  3. PEON [Suspect]
     Indication: PYREXIA
     Dosage: DOSAGE REGIMEN: 80 MG X 3.
     Route: 048
     Dates: start: 20040609, end: 20040610
  4. SOLETON [Suspect]
     Indication: PYREXIA
     Route: 048
     Dates: start: 20040610, end: 20040611
  5. TENORMIN [Concomitant]
     Indication: HYPERTENSION
     Route: 048
     Dates: start: 20040528, end: 20040618
  6. GLYCYRON [Concomitant]
     Indication: HEPATITIS C
     Route: 048
     Dates: start: 20040528, end: 20040618
  7. KOLANTYL [Concomitant]
     Indication: GASTRIC DISORDER
     Route: 048
     Dates: start: 20040528, end: 20040618
  8. DEPAS [Concomitant]
     Route: 048
     Dates: start: 20040528, end: 20040618
  9. FLUTICASONE PROPIONATE [Concomitant]
     Dates: start: 20040528, end: 20040618
  10. CLARITHROMYCIN [Concomitant]
     Indication: GASTROINTESTINAL INFECTION
     Route: 048
     Dates: start: 20040610, end: 20040611

REACTIONS (9)
  - ANOREXIA [None]
  - DEHYDRATION [None]
  - DIARRHOEA [None]
  - HEADACHE [None]
  - NAUSEA [None]
  - PYREXIA [None]
  - RENAL FAILURE ACUTE [None]
  - RHINORRHOEA [None]
  - UPPER RESPIRATORY TRACT INFLAMMATION [None]
